FAERS Safety Report 25127390 (Version 1)
Quarter: 2025Q1

REPORT INFORMATION
  Report Type: Spontaneous
  Country: FR (occurrence: FR)
  Receive Date: 20250327
  Receipt Date: 20250327
  Transmission Date: 20250409
  Serious: Yes (Other)
  Sender: CLINIGEN
  Company Number: FR-CLINIGEN-FR-CLI-2025-000091

PATIENT

DRUGS (1)
  1. DEXRAZOXANE [Suspect]
     Active Substance: DEXRAZOXANE
     Indication: Administration site extravasation
     Route: 042
     Dates: start: 20250307, end: 20250309

REACTIONS (1)
  - Off label use [Unknown]
